FAERS Safety Report 4820355-3 (Version None)
Quarter: 2005Q4

REPORT INFORMATION
  Report Type: 
  Country: None (occurrence: None)
  Receive Date: 20051104
  Receipt Date: 20051025
  Transmission Date: 20060501
  Serious: Yes (Hospitalization)
  Sender: FDA-Public Use
  Company Number: 2005CG01776

PATIENT
  Age: 28 Year
  Sex: Male
  Weight: 54 kg

DRUGS (12)
  1. MERONEM [Suspect]
     Indication: PSEUDOMONAS INFECTION
     Route: 042
     Dates: start: 20050907, end: 20050909
  2. CIPROFLOXACIN [Suspect]
     Route: 048
     Dates: start: 20050907, end: 20050909
  3. TOCO [Concomitant]
     Route: 048
  4. CREON [Concomitant]
     Route: 048
  5. DELURSAN [Concomitant]
     Route: 048
  6. NEBCIN [Concomitant]
     Route: 042
     Dates: start: 20050907, end: 20050907
  7. FLIXOTIDE [Concomitant]
  8. SEREVENT [Concomitant]
  9. MULTIVITAMIN [Concomitant]
  10. CALTRATE D3 [Concomitant]
  11. ZITHROMAX [Concomitant]
  12. COLISTIN SULFATE [Concomitant]
     Dates: end: 20050907

REACTIONS (3)
  - DRUG EFFECT DECREASED [None]
  - DRY MOUTH [None]
  - DYSGEUSIA [None]
